FAERS Safety Report 24157282 (Version 5)
Quarter: 2024Q4

REPORT INFORMATION
  Report Type: Spontaneous
  Country: US (occurrence: US)
  Receive Date: 20240731
  Receipt Date: 20241224
  Transmission Date: 20250114
  Serious: Yes (Death, Other)
  Sender: SANOFI AVENTIS
  Company Number: US-SA-2024SA217253

PATIENT
  Age: 73 Year
  Sex: Male

DRUGS (16)
  1. DUPIXENT [Suspect]
     Active Substance: DUPILUMAB
     Indication: Dermatitis atopic
     Dosage: 600 MG, 1X
     Route: 058
     Dates: start: 2019, end: 2019
  2. DUPIXENT [Suspect]
     Active Substance: DUPILUMAB
     Dosage: 300 MG, QOW
     Route: 058
     Dates: start: 20220802
  3. ERLEADA [Concomitant]
     Active Substance: APALUTAMIDE
     Dosage: UNK
  4. SIMPONI [Concomitant]
     Active Substance: GOLIMUMAB
     Dosage: UNK
  5. VITAMINS [Concomitant]
     Active Substance: VITAMINS
  6. PLAQUENIL [Concomitant]
     Active Substance: HYDROXYCHLOROQUINE SULFATE
  7. VITAMIN E [Concomitant]
     Active Substance: .ALPHA.-TOCOPHEROL
  8. FOLIC ACID [Concomitant]
     Active Substance: FOLIC ACID
  9. PROBIOTICS NOS [Concomitant]
     Active Substance: PROBIOTICS NOS
  10. FEXOFENADINE [Concomitant]
     Active Substance: FEXOFENADINE HYDROCHLORIDE
  11. METHOTREXATE [Concomitant]
     Active Substance: METHOTREXATE
  12. MONTELUKAST [Concomitant]
     Active Substance: MONTELUKAST SODIUM
  13. CALCIUM [Concomitant]
     Active Substance: CALCIUM
  14. VITAMIN D [Concomitant]
     Active Substance: VITAMIN D NOS
  15. GLUCOSAMINE [Concomitant]
     Active Substance: GLUCOSAMINE
  16. HERBALS\TURMERIC [Concomitant]
     Active Substance: HERBALS\TURMERIC

REACTIONS (4)
  - Death [Fatal]
  - Urethral stenosis [Unknown]
  - Constipation [Unknown]
  - Faeces hard [Unknown]

NARRATIVE: CASE EVENT DATE: 20241217
